FAERS Safety Report 14360982 (Version 1)
Quarter: 2018Q1

REPORT INFORMATION
  Report Type: Spontaneous
  Country: US (occurrence: US)
  Receive Date: 20180107
  Receipt Date: 20180107
  Transmission Date: 20180509
  Serious: Yes (Hospitalization, Other)
  Sender: FDA-Public Use
  Company Number: US-SHIRE-US201731825

PATIENT
  Age: 54 Year
  Sex: Female

DRUGS (1)
  1. 433 (CARBAMAZEPINE) [Suspect]
     Active Substance: CARBAMAZEPINE
     Indication: BIPOLAR DISORDER
     Route: 048

REACTIONS (4)
  - Respiratory depression [Recovered/Resolved]
  - Apnoea [Recovered/Resolved]
  - Overdose [Recovered/Resolved]
  - Areflexia [Recovered/Resolved]
